FAERS Safety Report 17975832 (Version 4)
Quarter: 2020Q4

REPORT INFORMATION
  Report Type: Spontaneous
  Country: IT (occurrence: IT)
  Receive Date: 20200702
  Receipt Date: 20201228
  Transmission Date: 20210113
  Serious: Yes (Death, Hospitalization, Other)
  Sender: FDA-Public Use
  Company Number: NVSC2020IT184551

PATIENT
  Age: 79 Year
  Sex: Male

DRUGS (10)
  1. CETIRIZINE HYDROCHLORIDE. [Suspect]
     Active Substance: CETIRIZINE HYDROCHLORIDE
     Indication: DRUG HYPERSENSITIVITY
  2. AMOXICILLIN/CLAVULANIC ACID [Concomitant]
     Active Substance: AMOXICILLIN\CLAVULANIC ACID
     Indication: PRODUCT USED FOR UNKNOWN INDICATION
     Dosage: UNK, CPR
     Route: 065
     Dates: start: 20130218
  3. RANITIDINE. [Concomitant]
     Active Substance: RANITIDINE
     Indication: PREMEDICATION
     Dosage: UNK
     Route: 065
  4. CETIRIZINE HYDROCHLORIDE. [Suspect]
     Active Substance: CETIRIZINE HYDROCHLORIDE
     Indication: PREMEDICATION
     Dosage: UNK
     Route: 065
  5. EPINEPHRINE. [Suspect]
     Active Substance: EPINEPHRINE
     Indication: CARDIAC ARREST
     Dosage: 0.5 MG
     Route: 030
  6. PACLITAXEL. [Suspect]
     Active Substance: PACLITAXEL
     Indication: TRANSITIONAL CELL CARCINOMA
     Dosage: 110 MG WITH POLYOXYL 35 CASTOR OIL [CREMOPHOR EL] 500CM 3 SOLUTION, INFUSED AT A RATE OF 50 ML/H
     Route: 065
  7. ONDANSETRON [Concomitant]
     Active Substance: ONDANSETRON
     Indication: PREMEDICATION
     Dosage: UNK
     Route: 065
  8. DEXAMETHASONE SODIUM PHOSPHATE. [Suspect]
     Active Substance: DEXAMETHASONE SODIUM PHOSPHATE
     Indication: DRUG HYPERSENSITIVITY
     Dosage: UNK
     Route: 065
  9. CEFTRIAXONE. [Suspect]
     Active Substance: CEFTRIAXONE
     Indication: SUBCUTANEOUS ABSCESS
     Dosage: 1 UNK, ONCE/SINGLE
     Route: 030
     Dates: start: 20130218
  10. DEXAMETHASONE SODIUM PHOSPHATE. [Suspect]
     Active Substance: DEXAMETHASONE SODIUM PHOSPHATE
     Indication: PREMEDICATION

REACTIONS (11)
  - Anaphylactic shock [Fatal]
  - Myocardial oedema [Fatal]
  - Cardiac arrest [Fatal]
  - Drug hypersensitivity [Fatal]
  - Brain oedema [Fatal]
  - Drug ineffective [Fatal]
  - Emphysema [Fatal]
  - Dyspnoea [Fatal]
  - Cyanosis [Fatal]
  - Off label use [Unknown]
  - Pulmonary oedema [Fatal]

NARRATIVE: CASE EVENT DATE: 20130218
